FAERS Safety Report 8411758-9 (Version None)
Quarter: 2012Q2

REPORT INFORMATION
  Report Type: 
  Country: None (occurrence: None)
  Receive Date: 20120531
  Receipt Date: 20120531
  Transmission Date: 20120825
  Serious: Yes (Other)
  Sender: FDA-Public Use
  Company Number: None

PATIENT
  Age: 45 Year
  Sex: Female
  Weight: 79.3795 kg

DRUGS (1)
  1. LEVOTHROID [Suspect]
     Indication: THYROIDECTOMY
     Dosage: 125 MCG ONCE A DAY

REACTIONS (5)
  - HYPERHIDROSIS [None]
  - ANXIETY [None]
  - DISEASE COMPLICATION [None]
  - IRRITABILITY [None]
  - NERVOUSNESS [None]
